FAERS Safety Report 8096721-2 (Version None)
Quarter: 2012Q1

REPORT INFORMATION
  Report Type: 
  Country: None (occurrence: None)
  Receive Date: 20120129
  Receipt Date: 20111116
  Transmission Date: 20120608
  Serious: No
  Sender: FDA-Public Use
  Company Number: US-ABBOTT-11P-163-0874749-00

PATIENT
  Age: 65 Year
  Sex: Female

DRUGS (6)
  1. PERCOCET [Concomitant]
     Indication: KNEE OPERATION
  2. RHEUMATREX [Concomitant]
     Indication: ARTHRITIS
  3. PERCOCET [Concomitant]
     Indication: ARTHRITIS
  4. HUMIRA [Suspect]
     Indication: PSORIASIS
     Dates: start: 20110901
  5. DIOVAN [Concomitant]
     Indication: HYPERTENSION
  6. PERCOCET [Concomitant]
     Indication: HIP SURGERY
     Dosage: DAILY AS NEEDED

REACTIONS (3)
  - ERYTHEMA [None]
  - SKIN EXFOLIATION [None]
  - PRURITUS [None]
